FAERS Safety Report 23668776 (Version 3)
Quarter: 2024Q2

REPORT INFORMATION
  Report Type: Spontaneous
  Country: US (occurrence: US)
  Receive Date: 20240325
  Receipt Date: 20240503
  Transmission Date: 20240716
  Serious: Yes (Other)
  Sender: FDA-Public Use
  Company Number: US-JNJFOC-20240351668

PATIENT
  Age: 45 Year
  Sex: Female

DRUGS (1)
  1. CONCERTA [Suspect]
     Active Substance: METHYLPHENIDATE HYDROCHLORIDE
     Indication: Narcolepsy
     Dosage: 36 MG IN AM AND THE 18 MG IN PM FOR A TOTAL OF 54 MG CONCERTA THROUGH THE DAY
     Route: 048

REACTIONS (7)
  - Gastroenterostomy [Unknown]
  - Drug ineffective [Unknown]
  - Product availability issue [Unknown]
  - Off label use [Unknown]
  - Therapeutic response decreased [Unknown]
  - Somnolence [Unknown]
  - Disturbance in attention [Unknown]
